FAERS Safety Report 17812251 (Version 1)
Quarter: 2020Q2

REPORT INFORMATION
  Report Type: Spontaneous
  Country: US (occurrence: US)
  Receive Date: 20200521
  Receipt Date: 20200521
  Transmission Date: 20200714
  Serious: Yes (Other)
  Sender: FDA-Public Use
  Company Number: US-ASPEN-GLO2020US004938

PATIENT
  Age: 5 Decade
  Sex: Female

DRUGS (2)
  1. CHLORAMBUCIL [Suspect]
     Active Substance: CHLORAMBUCIL
     Indication: T-CELL LYMPHOMA
     Route: 065
  2. BEXAROTENE. [Concomitant]
     Active Substance: BEXAROTENE
     Indication: CONDITION AGGRAVATED
     Route: 048

REACTIONS (2)
  - Drug ineffective [Unknown]
  - Superinfection [Unknown]
